FAERS Safety Report 25711514 (Version 1)
Quarter: 2025Q3

REPORT INFORMATION
  Report Type: Spontaneous
  Country: EU (occurrence: EU)
  Receive Date: 20250821
  Receipt Date: 20250821
  Transmission Date: 20251020
  Serious: Yes (Other)
  Sender: MERCK SHARP & DOHME LLC
  Company Number: None

PATIENT
  Age: 38 Year
  Sex: Female

DRUGS (4)
  1. KEYTRUDA [Suspect]
     Active Substance: PEMBROLIZUMAB
     Route: 042
     Dates: start: 20250505, end: 20250505
  2. KEYTRUDA [Suspect]
     Active Substance: PEMBROLIZUMAB
     Route: 042
     Dates: start: 20250526, end: 20250526
  3. KEYTRUDA [Suspect]
     Active Substance: PEMBROLIZUMAB
     Route: 042
     Dates: start: 20250616, end: 20250616
  4. PACLITAXEL [Concomitant]
     Active Substance: PACLITAXEL

REACTIONS (2)
  - Immune-mediated cholestasis [Recovered/Resolved]
  - Immune-mediated thyroiditis [Recovered/Resolved]

NARRATIVE: CASE EVENT DATE: 20250601
